FAERS Safety Report 21746080 (Version 1)
Quarter: 2022Q4

REPORT INFORMATION
  Report Type: Report from Study
  Country: US (occurrence: US)
  Receive Date: 20221219
  Receipt Date: 20221219
  Transmission Date: 20230113
  Serious: Yes (Other)
  Sender: FDA-Public Use
  Company Number: US-ABBVIE-4240697

PATIENT
  Sex: Female

DRUGS (1)
  1. HUMIRA [Suspect]
     Active Substance: ADALIMUMAB
     Indication: Psoriatic arthropathy
     Route: 058

REACTIONS (9)
  - Systemic lupus erythematosus [Unknown]
  - Joint stiffness [Recovering/Resolving]
  - Skin laceration [Unknown]
  - Fall [Recovering/Resolving]
  - Arthropathy [Unknown]
  - Alopecia [Recovering/Resolving]
  - Arthralgia [Unknown]
  - Contusion [Unknown]
  - Arthralgia [Unknown]

NARRATIVE: CASE EVENT DATE: 20220101
